FAERS Safety Report 17705923 (Version 1)
Quarter: 2020Q2

REPORT INFORMATION
  Report Type: Spontaneous
  Country: JP (occurrence: JP)
  Receive Date: 20200424
  Receipt Date: 20200424
  Transmission Date: 20200714
  Serious: Yes (Hospitalization, Other)
  Sender: FDA-Public Use
  Company Number: JP-PFIZER INC-2020065953

PATIENT
  Age: 59 Year
  Sex: Male
  Weight: 46.6 kg

DRUGS (14)
  1. LAC B [Concomitant]
     Active Substance: BIFIDOBACTERIUM SPP.
     Dosage: 1 G, 3X/DAY
     Route: 048
  2. CARBAZOCHROME SODIUM SULFONATE [Concomitant]
     Active Substance: CARBAZOCHROME SODIUM SULFONATE
     Dosage: 1 DF, 3X/DAY
     Route: 048
  3. CALONAL [Concomitant]
     Active Substance: ACETAMINOPHEN
     Dosage: 0.4 G, AS NEEDED
     Route: 048
     Dates: start: 20200115, end: 20200115
  4. FIRSTCIN [Suspect]
     Active Substance: CEFOZOPRAN HYDROCHLORIDE
     Indication: PNEUMONIA
     Dosage: 1 G, 2X/DAY
     Route: 017
     Dates: start: 20200116, end: 20200119
  5. SPIOLTO RESPIMAT [Concomitant]
     Active Substance: OLODATEROL HYDROCHLORIDE\TIOTROPIUM BROMIDE MONOHYDRATE
     Dosage: 2 UNK, 1X/DAY
     Route: 048
  6. CALONAL [Concomitant]
     Active Substance: ACETAMINOPHEN
     Dosage: 1 G, 3X/DAY
     Route: 048
     Dates: start: 20200116
  7. MIYA-BM [Concomitant]
     Active Substance: CLOSTRIDIUM BUTYRICUM SPORES STRAIN M-55
     Dosage: 1 DF, 3X/DAY
     Route: 048
     Dates: start: 20200118
  8. VFEND [Suspect]
     Active Substance: VORICONAZOLE
     Indication: BRONCHOPULMONARY ASPERGILLOSIS
     Dosage: 200 MG, 2X/DAY
     Route: 042
     Dates: start: 20200110, end: 20200120
  9. NEOPHAGEN [CYSTEINE;GLYCINE;GLYCYRRHIZIC ACID] [Concomitant]
     Dosage: UNK
     Dates: start: 20200121, end: 20200203
  10. HUSCODE [Concomitant]
     Active Substance: CHLORPHENIRAMINE MALEATE\DIHYDROCODEINE PHOSPHATE\METHYLEPHEDRINE HYDROCHLORIDE, DL-
     Dosage: 3 ML, 3X/DAY
     Route: 048
     Dates: start: 20200111
  11. SOLU-MEDROL [Concomitant]
     Active Substance: METHYLPREDNISOLONE SODIUM SUCCINATE
     Indication: DYSPNOEA
     Dosage: 40 MG, 2X/DAY
     Dates: start: 20200118, end: 20200120
  12. TAZOPIPE [Suspect]
     Active Substance: PIPERACILLIN SODIUM\TAZOBACTAM SODIUM
     Indication: INFECTION PROPHYLAXIS
     Dosage: 4.5 G, 2X/DAY
     Route: 017
     Dates: start: 20200108, end: 20200113
  13. OLOPATADINE HYDROCHLORIDE. [Concomitant]
     Active Substance: OLOPATADINE HYDROCHLORIDE
     Dosage: 1 DF, 2X/DAY
     Route: 048
  14. LANSOPRAZOLE. [Concomitant]
     Active Substance: LANSOPRAZOLE
     Dosage: 1 DF, 1X/DAY
     Route: 048

REACTIONS (5)
  - Dyspnoea [Recovered/Resolved]
  - Chronic obstructive pulmonary disease [Recovered/Resolved]
  - Pyrexia [Recovered/Resolved]
  - Drug-induced liver injury [Recovering/Resolving]
  - Wheezing [Recovering/Resolving]

NARRATIVE: CASE EVENT DATE: 20200114
